FAERS Safety Report 13093813 (Version 1)
Quarter: 2017Q1

REPORT INFORMATION
  Report Type: Spontaneous
  Country: US (occurrence: US)
  Receive Date: 20170105
  Receipt Date: 20170105
  Transmission Date: 20170428
  Serious: Yes (Hospitalization)
  Sender: FDA-Public Use
  Company Number: None

PATIENT
  Age: 65 Year
  Sex: Male
  Weight: 68.1 kg

DRUGS (4)
  1. LISINOPRIL. [Suspect]
     Active Substance: LISINOPRIL
     Indication: HYPERTENSION
     Dosage: 40 MG AM PO
     Route: 048
     Dates: start: 20110618, end: 20110713
  2. LISINOPRIL. [Suspect]
     Active Substance: LISINOPRIL
     Indication: DIABETES MELLITUS
     Dosage: 40 MG AM PO
     Route: 048
     Dates: start: 20110618, end: 20110713
  3. LISINOPRIL. [Suspect]
     Active Substance: LISINOPRIL
     Indication: DIABETES MELLITUS
     Dosage: 40 MG AM PO
     Route: 048
     Dates: start: 20110618, end: 20110713
  4. LISINOPRIL. [Suspect]
     Active Substance: LISINOPRIL
     Indication: HYPERTENSION
     Dosage: 40 MG AM PO
     Route: 048
     Dates: start: 20110618, end: 20110713

REACTIONS (2)
  - Angioedema [None]
  - Therapy change [None]

NARRATIVE: CASE EVENT DATE: 20110713
